FAERS Safety Report 7652801-4 (Version None)
Quarter: 2011Q3

REPORT INFORMATION
  Report Type: 
  Country: None (occurrence: None)
  Receive Date: 20110803
  Receipt Date: 20110722
  Transmission Date: 20111222
  Serious: Yes (Hospitalization)
  Sender: FDA-Public Use
  Company Number: PL-UCBSA-037231

PATIENT
  Age: 60 Year
  Sex: Male

DRUGS (3)
  1. METOTREKSAT [Concomitant]
  2. CIMZIA [Suspect]
     Indication: RHEUMATOID ARTHRITIS
     Route: 058
     Dates: start: 20110615, end: 20110101
  3. LEFLUNOMIDE [Concomitant]

REACTIONS (1)
  - URINARY TRACT INFECTION BACTERIAL [None]
